FAERS Safety Report 6993810-8 (Version None)
Quarter: 2010Q3

REPORT INFORMATION
  Report Type: 
  Country: None (occurrence: None)
  Receive Date: 20100917
  Receipt Date: 20100510
  Transmission Date: 20110219
  Serious: No
  Sender: FDA-Public Use
  Company Number: US-ASTRAZENECA-2010SE21238

PATIENT
  Age: 18 Year
  Sex: Female

DRUGS (2)
  1. SEROQUEL XR [Suspect]
     Indication: BIPOLAR DISORDER
     Route: 048
     Dates: start: 20090101
  2. EFFEXOR XR [Concomitant]

REACTIONS (5)
  - DRUG DOSE OMISSION [None]
  - NAUSEA [None]
  - PHARYNGEAL OEDEMA [None]
  - PYREXIA [None]
  - TREMOR [None]
